FAERS Safety Report 6985823-7 (Version None)
Quarter: 2010Q3

REPORT INFORMATION
  Report Type: 
  Country: None (occurrence: None)
  Receive Date: 20100915
  Receipt Date: 20100909
  Transmission Date: 20110219
  Serious: Yes (Life-Threatening)
  Sender: FDA-Public Use
  Company Number: PHHY2010US54735

PATIENT
  Sex: Female
  Weight: 61.224 kg

DRUGS (4)
  1. RECLAST [Suspect]
     Indication: OSTEOPOROSIS
     Dosage: UNK
     Route: 042
     Dates: start: 20100811
  2. LEXAPRO [Concomitant]
     Indication: DEPRESSION
     Dosage: 10MG , DAILY
     Route: 048
     Dates: start: 20071010, end: 20100830
  3. CALCIUM [Concomitant]
     Dosage: 100MG DAILY
  4. M.V.I. [Concomitant]
     Dosage: 1 TABLET PER DAY

REACTIONS (12)
  - ANXIETY [None]
  - ASTHMA [None]
  - DYSPNOEA [None]
  - FEELING ABNORMAL [None]
  - MYALGIA [None]
  - PAIN [None]
  - PRURITUS [None]
  - RASH ERYTHEMATOUS [None]
  - RASH GENERALISED [None]
  - RESPIRATORY DISORDER [None]
  - TREMOR [None]
  - VISUAL IMPAIRMENT [None]
